FAERS Safety Report 18953519 (Version 1)
Quarter: 2021Q1

REPORT INFORMATION
  Report Type: Spontaneous
  Country: US (occurrence: US)
  Receive Date: 20210301
  Receipt Date: 20210301
  Transmission Date: 20210420
  Serious: No
  Sender: FDA-Public Use
  Company Number: None

PATIENT
  Sex: Female

DRUGS (1)
  1. NUCALA [Suspect]
     Active Substance: MEPOLIZUMAB
     Indication: ASTHMA
     Dosage: ?          OTHER DOSE:1 PEN;OTHER FREQUENCY:EVERY 28 DAYS;?
     Route: 058
     Dates: start: 20191119, end: 20210211

REACTIONS (1)
  - Loss of therapeutic response [None]
